FAERS Safety Report 7409241-2 (Version None)
Quarter: 2011Q2

REPORT INFORMATION
  Report Type: 
  Country: None (occurrence: None)
  Receive Date: 20110412
  Receipt Date: 20110407
  Transmission Date: 20111010
  Serious: Yes (Death)
  Sender: FDA-Public Use
  Company Number: A0886880A

PATIENT
  Age: 67 Year
  Sex: Male

DRUGS (8)
  1. PREDNISONE [Concomitant]
  2. TRICOR [Concomitant]
  3. AMARYL [Concomitant]
  4. AVANDIA [Suspect]
     Dosage: 8MG PER DAY
     Route: 048
     Dates: start: 20030501
  5. ACCUPRIL [Concomitant]
  6. ALBUTEROL [Concomitant]
  7. COMBIVENT [Concomitant]
  8. PRECOSE [Concomitant]

REACTIONS (1)
  - CARDIO-RESPIRATORY ARREST [None]
